FAERS Safety Report 16890622 (Version 1)
Quarter: 2020Q3

REPORT INFORMATION
  Report Type: Spontaneous
  Country: ES (occurrence: ES)
  Receive Date: 20191007
  Receipt Date: 20191007
  Transmission Date: 20201105
  Serious: Yes (Life-Threatening, Hospitalization)
  Sender: FDA-Public Use
  Company Number: ES-MYLANLABS-2017M1005437

PATIENT
  Age: 3 Year
  Sex: Male

DRUGS (2)
  1. EPHEDRINE. [Suspect]
     Active Substance: EPHEDRINE
     Indication: ANAPHYLACTIC REACTION
     Route: 065
  2. EPINEPHRINE. [Suspect]
     Active Substance: EPINEPHRINE
     Indication: ANAPHYLACTIC REACTION
     Route: 042

REACTIONS (1)
  - Drug ineffective [Unknown]
